FAERS Safety Report 10990778 (Version 1)
Quarter: 2015Q2

REPORT INFORMATION
  Report Type: Report from Study
  Country: AU (occurrence: AU)
  Receive Date: 20150406
  Receipt Date: 20150406
  Transmission Date: 20150821
  Serious: Yes (Hospitalization, Other)
  Sender: FDA-Public Use
  Company Number: AU-BRISTOL-MYERS SQUIBB COMPANY-20618526

PATIENT
  Age: 72 Year
  Sex: Male
  Weight: 82.1 kg

DRUGS (20)
  1. PERINDOPRIL [Concomitant]
     Active Substance: PERINDOPRIL
     Dosage: UNK
     Dates: start: 2001
  2. ONDANSETRON [Concomitant]
     Active Substance: ONDANSETRON
     Dosage: UNK
     Dates: start: 20140203
  3. HYDROCORTISONE. [Concomitant]
     Active Substance: HYDROCORTISONE
  4. PHENERGAN [Concomitant]
     Active Substance: PROMETHAZINE HYDROCHLORIDE
  5. VOLTARENE [Concomitant]
     Active Substance: DICLOFENAC SODIUM
     Dosage: UNK
     Dates: start: 20140116
  6. THYROXINE [Concomitant]
     Active Substance: LEVOTHYROXINE
  7. TEMAZEPAM. [Concomitant]
     Active Substance: TEMAZEPAM
  8. COLOXYL + SENNA [Concomitant]
  9. RABEPRAZOLE [Concomitant]
     Active Substance: RABEPRAZOLE
     Dosage: UNK
     Dates: start: 1999
  10. ENDONE [Concomitant]
     Active Substance: OXYCODONE HYDROCHLORIDE
  11. FENTANYL. [Concomitant]
     Active Substance: FENTANYL
  12. PARACETAMOL [Concomitant]
     Active Substance: ACETAMINOPHEN
  13. PANADOL [Concomitant]
     Active Substance: ACETAMINOPHEN
     Dosage: UNK
     Dates: start: 2009
  14. NAPROXEN. [Concomitant]
     Active Substance: NAPROXEN
     Dosage: UNK
     Dates: start: 20140127
  15. OXYCONTIN [Concomitant]
     Active Substance: OXYCODONE HYDROCHLORIDE
     Dosage: UNK
     Dates: start: 20140227
  16. IPILIMUMAB [Suspect]
     Active Substance: IPILIMUMAB
     Indication: METASTATIC MALIGNANT MELANOMA
     Route: 042
  17. TESTOSTERONE ENANTHATE. [Concomitant]
     Active Substance: TESTOSTERONE ENANTHATE
  18. NIVOLUMAB [Suspect]
     Active Substance: NIVOLUMAB
     Indication: METASTATIC MALIGNANT MELANOMA
     Dosage: 3 MG/KG, Q2WK
     Route: 042
     Dates: start: 20140114
  19. METOCLOPRAMIDE. [Concomitant]
     Active Substance: METOCLOPRAMIDE
     Dosage: UNK
     Dates: start: 20140203
  20. LOVAN [Concomitant]
     Active Substance: FLUOXETINE HYDROCHLORIDE
     Dosage: UNK
     Dates: start: 20140227

REACTIONS (5)
  - Lymphocytic hypophysitis [Recovered/Resolved with Sequelae]
  - Hypotension [Recovered/Resolved]
  - Renal impairment [Recovered/Resolved]
  - Hyponatraemia [Recovered/Resolved]
  - Anaemia [Recovered/Resolved]

NARRATIVE: CASE EVENT DATE: 20140407
